FAERS Safety Report 15183143 (Version 1)
Quarter: 2018Q4

REPORT INFORMATION
  Report Type: Spontaneous
  Country: US (occurrence: US)
  Receive Date: 20180723
  Receipt Date: 20180723
  Transmission Date: 20190204
  Serious: No
  Sender: FDA-Public Use
  Company Number: US-AYTU BIOSCIENCES, INC.-2017AYT000124

PATIENT

DRUGS (3)
  1. CALCIUM [Concomitant]
     Active Substance: CALCIUM
     Route: 048
  2. NATESTO [Suspect]
     Active Substance: TESTOSTERONE
     Indication: BLOOD TESTOSTERONE DECREASED
     Dosage: 1 DF, TID
     Route: 045
     Dates: start: 201710
  3. MULTIVITAMIN                       /00097801/ [Concomitant]
     Active Substance: VITAMINS
     Dosage: UNK

REACTIONS (5)
  - Wrong technique in device usage process [Unknown]
  - Wrong technique in product usage process [Unknown]
  - Oropharyngeal pain [Not Recovered/Not Resolved]
  - Product storage error [Unknown]
  - Product physical consistency issue [Unknown]

NARRATIVE: CASE EVENT DATE: 201710
